FAERS Safety Report 10446973 (Version 3)
Quarter: 2015Q2

REPORT INFORMATION
  Report Type: Spontaneous
  Country: US (occurrence: US)
  Receive Date: 20140911
  Receipt Date: 20150504
  Transmission Date: 20150821
  Serious: Yes (Hospitalization, Disabling, Other)
  Sender: FDA-Public Use
  Company Number: US-MERCK-1409USA004487

PATIENT
  Sex: Female
  Weight: 83.9 kg

DRUGS (3)
  1. JANUMET [Suspect]
     Active Substance: METFORMIN HYDROCHLORIDE\SITAGLIPTIN PHOSPHATE
     Indication: TYPE 2 DIABETES MELLITUS
     Dosage: 50/500 MG,
     Route: 048
     Dates: start: 20090929
  2. VICTOZA [Suspect]
     Active Substance: LIRAGLUTIDE
     Indication: TYPE 2 DIABETES MELLITUS
     Dosage: 0.6 MG, QD
     Dates: start: 201109, end: 201112
  3. BYETTA [Suspect]
     Active Substance: EXENATIDE
     Indication: TYPE 2 DIABETES MELLITUS
     Dosage: 10 MICROGRAM, BID
     Dates: start: 20120613, end: 20121006

REACTIONS (28)
  - Sleep apnoea syndrome [Unknown]
  - Neuropathy peripheral [Unknown]
  - Back pain [Unknown]
  - Follicular thyroid cancer [Unknown]
  - Hypertension [Unknown]
  - Rheumatoid arthritis [Unknown]
  - Pollakiuria [Unknown]
  - Carpal tunnel syndrome [Unknown]
  - Headache [Unknown]
  - Disability [Not Recovered/Not Resolved]
  - Spinal osteoarthritis [Unknown]
  - Rash [Unknown]
  - Fatigue [Unknown]
  - Radiotherapy [Unknown]
  - Arthropathy [Unknown]
  - Pruritus [Unknown]
  - Thyroidectomy [Unknown]
  - Gastrooesophageal reflux disease [Unknown]
  - Paraesthesia [Unknown]
  - Ocular hyperaemia [Unknown]
  - Inappropriate schedule of drug administration [Unknown]
  - Urine odour abnormal [Unknown]
  - Uterine dilation and curettage [Unknown]
  - Diabetic neuropathy [Unknown]
  - Emphysema [Unknown]
  - Cervical radiculopathy [Unknown]
  - Depression [Unknown]
  - Hypercholesterolaemia [Unknown]

NARRATIVE: CASE EVENT DATE: 20090929
